FAERS Safety Report 8665027 (Version 3)
Quarter: 2012Q4

REPORT INFORMATION
  Report Type: 
  Country: SI (occurrence: SI)
  Receive Date: 20120716
  Receipt Date: 20120919
  Transmission Date: 20130627
  Serious: Yes (Death, Other)
  Sender: FDA-Public Use
  Company Number: SI-AMGEN-SVNSP2012042706

PATIENT
  Age: 90 Year
  Sex: Female

DRUGS (2)
  1. PROLIA [Suspect]
     Indication: OSTEOPOROSIS
     Dosage: 60 mg, q6mo
     Route: 058
     Dates: start: 20111222
  2. DORETONSIN [Concomitant]
     Indication: BACK PAIN
     Dosage: UNK
     Dates: start: 20111206

REACTIONS (9)
  - Circulatory collapse [Fatal]
  - Urinary tract infection [Unknown]
  - Non-Hodgkin^s lymphoma [Unknown]
  - Lymphadenopathy [Unknown]
  - Pyrexia [Unknown]
  - Malaise [Unknown]
  - Cardiac fibrillation [Unknown]
  - Fall [Unknown]
  - Dyspnoea [Unknown]
